APPROVED DRUG PRODUCT: NAPROXEN
Active Ingredient: NAPROXEN
Strength: 375MG
Dosage Form/Route: TABLET;ORAL
Application: A076494 | Product #002
Applicant: HIKMA INTERNATIONAL PHARMACEUTICALS LLC
Approved: Jan 14, 2004 | RLD: No | RS: No | Type: DISCN